FAERS Safety Report 8792810 (Version 1)
Quarter: 2012Q4

REPORT INFORMATION
  Report Type: Report from Study
  Country: US (occurrence: US)
  Receive Date: 20120918
  Receipt Date: 20120918
  Transmission Date: 20130627
  Serious: Yes (Death, Hospitalization)
  Sender: FDA-Public Use
  Company Number: US-009507513-1209USA006227

PATIENT

DRUGS (9)
  1. VORINOSTAT [Suspect]
     Indication: GLIOBLASTOMA MULTIFORME
     Dosage: 200 mg, bid, 7 days on/7 days off
     Route: 048
     Dates: start: 20120807, end: 20120812
  2. ERLOTINIB HYDROCHLORIDE [Suspect]
     Indication: GLIOBLASTOMA MULTIFORME
     Dosage: 150 mg, qd, 3 weeks on/1 week off
     Route: 048
     Dates: start: 20120807, end: 20120812
  3. TEMODAR [Suspect]
     Indication: GLIOBLASTOMA MULTIFORME
     Dosage: 100 mg/m2, qd,  7 days on/7 days off
     Route: 048
     Dates: start: 20120807, end: 20120812
  4. AMLODIPINE [Concomitant]
     Dosage: 5 mg, qd
  5. DEXAMETHASONE [Concomitant]
     Dosage: 4 mg, bid
  6. METOPROLOL [Concomitant]
     Dosage: 25 mg, bid
  7. OMEPRAZOLE [Concomitant]
     Dosage: 40 mg, qd
  8. ZOFRAN [Concomitant]
     Dosage: 8 mg, prn
  9. LOMOTIL [Concomitant]
     Dosage: 2.5 mg, prn

REACTIONS (7)
  - Respiratory failure [Fatal]
  - Pneumonitis [Fatal]
  - Lung infiltration [Fatal]
  - Cerebral ischaemia [Fatal]
  - Thrombocytopenia [Fatal]
  - Neutropenia [Fatal]
  - Haemoglobin decreased [Fatal]
